FAERS Safety Report 9865596 (Version 2)
Quarter: 2014Q1

REPORT INFORMATION
  Report Type: Spontaneous
  Country: US (occurrence: US)
  Receive Date: 20140203
  Receipt Date: 20140203
  Transmission Date: 20141002
  Serious: No
  Sender: FDA-Public Use
  Company Number: US-ALLERGAN-1306101US

PATIENT
  Age: 50 Year
  Sex: Female

DRUGS (2)
  1. RESTASIS [Suspect]
     Indication: DRY EYE
     Dosage: 2 GTT, BID
     Route: 047
     Dates: start: 20130421, end: 20130424
  2. LEVOXYL [Concomitant]
     Indication: HYPERTHYROIDISM
     Dosage: UNK

REACTIONS (6)
  - Scleral discolouration [Not Recovered/Not Resolved]
  - Eye pain [Not Recovered/Not Resolved]
  - Headache [Not Recovered/Not Resolved]
  - Ocular hyperaemia [Unknown]
  - Eye discharge [Unknown]
  - Eye irritation [Unknown]
